FAERS Safety Report 16097178 (Version 2)
Quarter: 2019Q2

REPORT INFORMATION
  Report Type: Report from Study
  Country: US (occurrence: US)
  Receive Date: 20190320
  Receipt Date: 20190426
  Transmission Date: 20190711
  Serious: Yes (Death, Hospitalization)
  Sender: FDA-Public Use
  Company Number: US-ASTRAZENECA-2018SF70193

PATIENT
  Age: 71 Week
  Sex: Female
  Weight: 9 kg

DRUGS (1)
  1. SYNAGIS [Suspect]
     Active Substance: PALIVIZUMAB
     Indication: ANTIVIRAL PROPHYLAXIS
     Route: 030

REACTIONS (12)
  - Gastrointestinal disorder [Unknown]
  - Pyrexia [Fatal]
  - Hypotension [Unknown]
  - Abdominal distension [Unknown]
  - Pneumonia [Fatal]
  - Respiratory failure [Fatal]
  - Oxygen saturation decreased [Unknown]
  - Seizure [Unknown]
  - Lung disorder [Unknown]
  - General physical health deterioration [Unknown]
  - Neurodegenerative disorder [Fatal]
  - Cardiac arrest [Unknown]

NARRATIVE: CASE EVENT DATE: 20170801
